FAERS Safety Report 15542744 (Version 3)
Quarter: 2018Q4

REPORT INFORMATION
  Report Type: Report from Study
  Country: US (occurrence: US)
  Receive Date: 20181023
  Receipt Date: 20181227
  Transmission Date: 20190205
  Serious: Yes (Hospitalization, Other)
  Sender: FDA-Public Use
  Company Number: US-AMGEN-USASL2018146172

PATIENT
  Age: 35 Year
  Sex: Female
  Weight: 138.41 kg

DRUGS (3)
  1. PREDNISONE. [Suspect]
     Active Substance: PREDNISONE
     Indication: HYPERMOBILITY SYNDROME
     Dosage: 60 MG UPTO 29/SEP/2018, CHANGED TO 40 MG IN 2018, UNK
     Route: 065
     Dates: start: 20180926
  2. AIMOVIG [Suspect]
     Active Substance: ERENUMAB-AOOE
     Indication: MIGRAINE PROPHYLAXIS
     Dosage: 70 MG, QMO
     Route: 058
     Dates: start: 20180829, end: 20180829
  3. PREDNISONE. [Suspect]
     Active Substance: PREDNISONE
     Indication: ANTI-NEUTROPHIL CYTOPLASMIC ANTIBODY POSITIVE VASCULITIS

REACTIONS (4)
  - Drug hypersensitivity [Unknown]
  - Upper respiratory tract infection [Unknown]
  - Hypermobility syndrome [Recovering/Resolving]
  - Vasculitis [Recovering/Resolving]

NARRATIVE: CASE EVENT DATE: 2018
